FAERS Safety Report 11977271 (Version 1)
Quarter: 2016Q1

REPORT INFORMATION
  Report Type: Spontaneous
  Country: US (occurrence: None)
  Receive Date: 20160128
  Receipt Date: 20160128
  Transmission Date: 20160526
  Serious: Yes (Hospitalization)
  Sender: FDA-Public Use
  Company Number: None

PATIENT
  Age: 60 Year
  Sex: Female

DRUGS (1)
  1. GLIPIZIDE. [Suspect]
     Active Substance: GLIPIZIDE

REACTIONS (7)
  - Cystitis noninfective [None]
  - Pain in extremity [None]
  - Muscular weakness [None]
  - Myalgia [None]
  - Bone pain [None]
  - Diarrhoea [None]
  - Blood potassium decreased [None]
